FAERS Safety Report 19630826 (Version 3)
Quarter: 2022Q1

REPORT INFORMATION
  Report Type: Spontaneous
  Country: US (occurrence: US)
  Receive Date: 20210728
  Receipt Date: 20220205
  Transmission Date: 20220423
  Serious: No
  Sender: FDA-Public Use
  Company Number: US-SA-SAC20210721001379

PATIENT
  Age: 47 Year
  Sex: Female

DRUGS (1)
  1. DUPIXENT [Suspect]
     Active Substance: DUPILUMAB
     Indication: Nasal polyps
     Dosage: 300 MG
     Route: 058
     Dates: start: 20210713

REACTIONS (9)
  - Feeling abnormal [Unknown]
  - Headache [Unknown]
  - Pain [Unknown]
  - Retinal drusen [Unknown]
  - Deposit eye [Unknown]
  - Visual impairment [Recovered/Resolved]
  - Oral herpes [Unknown]
  - Dry eye [Unknown]
  - Product use in unapproved indication [Unknown]

NARRATIVE: CASE EVENT DATE: 20210713
